FAERS Safety Report 12418291 (Version 1)
Quarter: 2016Q2

REPORT INFORMATION
  Report Type: Spontaneous
  Country: US (occurrence: US)
  Receive Date: 20160531
  Receipt Date: 20160531
  Transmission Date: 20160815
  Serious: No
  Sender: FDA-Public Use
  Company Number: US-PFIZER INC-2016274535

PATIENT
  Sex: Male
  Weight: 103.4 kg

DRUGS (2)
  1. BENAZEPRIL HYDROCHLORIDE AND HYDROCHLOROTHIAZIDE [Concomitant]
     Active Substance: BENAZEPRIL HYDROCHLORIDE\HYDROCHLOROTHIAZIDE
     Indication: BLOOD PRESSURE INCREASED
     Dosage: [BENAZEPRIL HYDROCHLORIDE, 20]/[HYDROCHLOROTHIAZIDE, 25MG] TABLET, 1 TABLET ONCE A DAY
  2. VIAGRA [Suspect]
     Active Substance: SILDENAFIL CITRATE
     Indication: SEXUAL DYSFUNCTION
     Dosage: UNKNOWN DOSAGE-JUST TOOK ONE

REACTIONS (2)
  - Prescription drug used without a prescription [Unknown]
  - Lip discolouration [Recovered/Resolved]
